FAERS Safety Report 16075612 (Version 3)
Quarter: 2021Q1

REPORT INFORMATION
  Report Type: Other
  Country: US (occurrence: US)
  Receive Date: 20190315
  Receipt Date: 20210319
  Transmission Date: 20210419
  Serious: Yes (Other)
  Sender: FDA-Public Use
  Company Number: US-ROCHE-2160449

PATIENT
  Age: 57 Year
  Sex: Female

DRUGS (17)
  1. AMPYRA [Concomitant]
     Active Substance: DALFAMPRIDINE
     Route: 048
     Dates: start: 20180627
  2. CALTRATE WITH VITAMIN D [Concomitant]
     Active Substance: CALCIUM CARBONATE\CHOLECALCIFEROL
     Dosage: 300MG?800MG
     Dates: start: 20180822
  3. MIRALAX [Concomitant]
     Active Substance: POLYETHYLENE GLYCOL 3350
     Dosage: MIX 1 PACK WITH 8 OUNCES OF WATER AND DRINK DAILY
     Route: 048
  4. OCREVUS [Suspect]
     Active Substance: OCRELIZUMAB
     Indication: MULTIPLE SCLEROSIS
     Dosage: 2 INFUSION INITIAL DOSE IN LATE JUL/EA
     Route: 042
     Dates: start: 20180725, end: 201808
  5. ESTRADIOL. [Concomitant]
     Active Substance: ESTRADIOL
     Dosage: DAILY
     Route: 048
  6. ARMOUR THYROID [Concomitant]
     Active Substance: THYROID, PORCINE
     Dosage: DAILY
     Route: 048
  7. OCREVUS [Suspect]
     Active Substance: OCRELIZUMAB
     Indication: RELAPSING-REMITTING MULTIPLE SCLEROSIS
     Dosage: (PRESCRIBED AS 300 MG ON DAY 1 AND DAY 15 AND 600 MG ONCE IN 6 MONTHS)
     Route: 042
  8. ACETAMINOPHEN. [Concomitant]
     Active Substance: ACETAMINOPHEN
  9. POTASSIUM CHLORIDE. [Concomitant]
     Active Substance: POTASSIUM CHLORIDE
     Dates: start: 20180822
  10. IBANDRONATE SODIUM. [Concomitant]
     Active Substance: IBANDRONATE SODIUM
     Route: 048
  11. OCREVUS [Suspect]
     Active Substance: OCRELIZUMAB
     Route: 042
     Dates: start: 20180822
  12. VITAMIN D3 [Concomitant]
     Active Substance: CHOLECALCIFEROL
  13. ALIGN [Concomitant]
     Active Substance: BIFIDOBACTERIUM LONGUM SUBSP. INFANTIS
     Dates: start: 20160721
  14. FOLIC ACID. [Concomitant]
     Active Substance: FOLIC ACID
     Dates: start: 20180822
  15. MYRBETRIQ [Concomitant]
     Active Substance: MIRABEGRON
     Dosage: DAILY
     Dates: start: 20160721
  16. NITROFURANTOIN. [Concomitant]
     Active Substance: NITROFURANTOIN
     Dosage: DAILY
     Route: 048
  17. FLUTICASONE. [Concomitant]
     Active Substance: FLUTICASONE

REACTIONS (19)
  - Upper respiratory tract infection [Recovering/Resolving]
  - Fracture displacement [Unknown]
  - Pyrexia [Recovering/Resolving]
  - Abdominal discomfort [Recovered/Resolved]
  - Rhinorrhoea [Unknown]
  - Pain in extremity [Unknown]
  - Malaise [Unknown]
  - Headache [Recovered/Resolved]
  - Diarrhoea [Recovered/Resolved]
  - Sinus disorder [Unknown]
  - Pain [Unknown]
  - Influenza like illness [Recovered/Resolved]
  - Ear pain [Unknown]
  - Oropharyngeal pain [Not Recovered/Not Resolved]
  - Chills [Recovering/Resolving]
  - Feeling abnormal [Not Recovered/Not Resolved]
  - Cough [Recovered/Resolved]
  - Dyspnoea [Unknown]
  - Nausea [Unknown]

NARRATIVE: CASE EVENT DATE: 20181016
